FAERS Safety Report 7358429-8 (Version None)
Quarter: 2011Q1

REPORT INFORMATION
  Report Type: 
  Country: None (occurrence: None)
  Receive Date: 20110314
  Receipt Date: 20110314
  Transmission Date: 20110831
  Serious: Yes (Hospitalization)
  Sender: FDA-Public Use
  Company Number: None

PATIENT
  Age: 75 Year
  Sex: Male
  Weight: 85.2762 kg

DRUGS (11)
  1. NAMENDA [Concomitant]
  2. CIPROFLOXACIN [Concomitant]
  3. NITROGLYCERIN [Concomitant]
  4. EXELON [Concomitant]
  5. PLENDIL [Concomitant]
  6. NEXIUM [Concomitant]
  7. LIPITOR [Concomitant]
  8. LOPRESSOR [Concomitant]
  9. DECITABINE [Suspect]
     Indication: MYELODYSPLASTIC SYNDROME
     Dosage: 0.2MG/KG SQ
     Dates: start: 20110124
  10. OXYBUTYNIN [Concomitant]
  11. GLYBURIDE [Concomitant]

REACTIONS (1)
  - FEBRILE NEUTROPENIA [None]
